FAERS Safety Report 19787187 (Version 1)
Quarter: 2021Q3

REPORT INFORMATION
  Report Type: Other
  Country: JP (occurrence: JP)
  Receive Date: 20210903
  Receipt Date: 20210903
  Transmission Date: 20211014
  Serious: Yes (Other)
  Sender: FDA-Public Use
  Company Number: JP-UROVANT SCIENCES GMBH-202108-URV-000466

PATIENT
  Age: 75 Year
  Sex: Male

DRUGS (1)
  1. BEOVA TABLETS [Suspect]
     Active Substance: VIBEGRON
     Indication: HYPERTONIC BLADDER
     Dosage: 50 MG, QD
     Route: 048
     Dates: start: 202102

REACTIONS (1)
  - Ventricular tachycardia [Unknown]
